FAERS Safety Report 8558784-7 (Version None)
Quarter: 2012Q3

REPORT INFORMATION
  Report Type: 
  Country: None (occurrence: None)
  Receive Date: 20120801
  Receipt Date: 20120723
  Transmission Date: 20120928
  Serious: Yes (Hospitalization, Disabling, Other)
  Sender: FDA-Public Use
  Company Number: US-009507513-1203USA03309

PATIENT

DRUGS (5)
  1. FOSAMAX [Suspect]
     Indication: OSTEOPENIA
     Dosage: 10 MG, UNK
     Route: 048
     Dates: start: 19971201, end: 20011120
  2. FOSAMAX PLUS D [Suspect]
     Indication: OSTEOPOROSIS
     Dosage: 70/5600
     Route: 048
     Dates: start: 20011120, end: 20090122
  3. FOSAMAX PLUS D [Suspect]
     Indication: OSTEOPENIA
     Dosage: 70/2800
     Route: 048
     Dates: start: 20070530
  4. FOSAMAX [Suspect]
     Dosage: 70 MG, UNK
     Route: 048
     Dates: start: 20090122, end: 20110701
  5. FOSAMAX [Suspect]
     Indication: OSTEOPOROSIS
     Dosage: 10 MG, UNK
     Route: 048
     Dates: start: 19960701, end: 19970501

REACTIONS (20)
  - FEMUR FRACTURE [None]
  - STRESS FRACTURE [None]
  - SPINAL COLUMN STENOSIS [None]
  - BONE DENSITY DECREASED [None]
  - TOOTH DISORDER [None]
  - ARTHRALGIA [None]
  - PERINEURIAL CYST [None]
  - PERIARTHRITIS [None]
  - PNEUMONIA [None]
  - LUMBAR RADICULOPATHY [None]
  - HORMONE LEVEL ABNORMAL [None]
  - CARDIAC DISORDER [None]
  - JOINT EFFUSION [None]
  - BACK PAIN [None]
  - MYOFASCIAL PAIN SYNDROME [None]
  - OSTEOPOROSIS [None]
  - OSTEOARTHRITIS [None]
  - HYPOTHYROIDISM [None]
  - HYPERTENSION [None]
  - ARTHRITIS [None]
